FAERS Safety Report 5650749-8 (Version None)
Quarter: 2008Q1

REPORT INFORMATION
  Report Type: 
  Country: None (occurrence: None)
  Receive Date: 20080305
  Receipt Date: 20080227
  Transmission Date: 20080703
  Serious: Yes (Hospitalization, Other)
  Sender: FDA-Public Use
  Company Number: PHEH2008US01139

PATIENT
  Age: 79 Year
  Sex: Male

DRUGS (11)
  1. NIFEDIPINE [Concomitant]
     Dosage: 60 MG, BID
  2. METFORMIN HCL [Concomitant]
  3. LISINOPRIL [Suspect]
     Dosage: 40 MG, UNK
  4. LISINOPRIL [Suspect]
     Dosage: 20 MG, UNK
  5. LIPITOR [Concomitant]
     Dosage: 20 MG, UNK
  6. TRIAMTERENE AND HYDROCHLOROTHIAZID ^HARRIS^ [Concomitant]
  7. MIRAPEX [Concomitant]
  8. LASIX [Concomitant]
     Dosage: 40 MG, BID
  9. PROCARDIA [Concomitant]
     Dosage: 60 MG, BID
  10. COZAAR [Concomitant]
     Dosage: 100 MG, QD
  11. TEKTURNA [Suspect]
     Indication: HYPERTENSION
     Dosage: 300 MG/QD
     Dates: start: 20071003, end: 20071212

REACTIONS (23)
  - ABDOMINAL PAIN LOWER [None]
  - BIOPSY KIDNEY [None]
  - BLOOD CREATININE INCREASED [None]
  - BLOOD PRESSURE INCREASED [None]
  - CATHETER PLACEMENT [None]
  - COMPUTERISED TOMOGRAM ABNORMAL [None]
  - DIALYSIS [None]
  - DISEASE PROGRESSION [None]
  - FATIGUE [None]
  - GLOMERULOSCLEROSIS [None]
  - GLYCOSYLATED HAEMOGLOBIN INCREASED [None]
  - KIDNEY FIBROSIS [None]
  - NASOPHARYNGITIS [None]
  - OEDEMA [None]
  - RENAL ARTERIOSCLEROSIS [None]
  - RENAL DISORDER [None]
  - RENAL FAILURE ACUTE [None]
  - RENAL FAILURE CHRONIC [None]
  - RENAL TUBULAR ATROPHY [None]
  - RENAL TUBULAR DISORDER [None]
  - RENAL TUBULAR NECROSIS [None]
  - TUBULOINTERSTITIAL NEPHRITIS [None]
  - WHEEZING [None]
